FAERS Safety Report 4656532-4 (Version None)
Quarter: 2005Q2

REPORT INFORMATION
  Report Type: 
  Country: None (occurrence: None)
  Receive Date: 20050505
  Receipt Date: 20050422
  Transmission Date: 20051028
  Serious: Yes (Other)
  Sender: FDA-Public Use
  Company Number: 2004236578DE

PATIENT
  Sex: Female
  Weight: 60 kg

DRUGS (2)
  1. CABERGOLINE [Suspect]
     Indication: RESTLESS LEGS SYNDROME
     Dosage: 4 MG , ORAL
     Route: 048
     Dates: start: 19971222, end: 20050101
  2. MADOPAR (BENSERAZIDE HYDROCHLRIDE, LEVODOPA) [Concomitant]

REACTIONS (4)
  - AORTIC VALVE INCOMPETENCE [None]
  - ENDOCARDITIS [None]
  - HYPERKINETIC HEART SYNDROME [None]
  - MITRAL VALVE INCOMPETENCE [None]
